FAERS Safety Report 13003591 (Version 2)
Quarter: 2016Q4

REPORT INFORMATION
  Report Type: Spontaneous
  Country: LK (occurrence: LK)
  Receive Date: 20161206
  Receipt Date: 20161227
  Transmission Date: 20170207
  Serious: Yes (Death, Life-Threatening, Hospitalization)
  Sender: FDA-Public Use
  Company Number: LK-GE HEALTHCARE MEDICAL DIAGNOSTICS-OMPQ-PR-1612S-2225

PATIENT
  Age: 47 Year
  Sex: Female
  Weight: 65 kg

DRUGS (6)
  1. OMNIPAQUE [Suspect]
     Active Substance: IOHEXOL
     Indication: ACUTE MYOCARDIAL INFARCTION
  2. NOREPINEPHRINE [Concomitant]
     Active Substance: NOREPINEPHRINE\NOREPINEPHRINE BITARTRATE
     Dosage: 0.4 MG/KG/MIN
     Dates: start: 20161127, end: 20161127
  3. OMNIPAQUE [Suspect]
     Active Substance: IOHEXOL
     Indication: DIAGNOSTIC PROCEDURE
  4. OMNIPAQUE [Suspect]
     Active Substance: IOHEXOL
     Indication: CHEST PAIN
     Route: 013
     Dates: start: 20161127, end: 20161127
  5. DOPAMINE [Concomitant]
     Active Substance: DOPAMINE\DOPAMINE HYDROCHLORIDE
     Dosage: 20 MG/KG/MIN
     Dates: start: 20161127, end: 20161127
  6. LASIX [Concomitant]
     Active Substance: FUROSEMIDE
     Route: 042

REACTIONS (1)
  - Hypotension [Fatal]

NARRATIVE: CASE EVENT DATE: 20161127
